FAERS Safety Report 17271522 (Version 1)
Quarter: 2020Q1

REPORT INFORMATION
  Report Type: Spontaneous
  Country: DE (occurrence: DE)
  Receive Date: 20200115
  Receipt Date: 20200115
  Transmission Date: 20200409
  Serious: Yes (Death)
  Sender: FDA-Public Use
  Company Number: DE-AMGEN-DEUNI2019110068

PATIENT
  Age: 38 Year
  Sex: Female
  Weight: 100 kg

DRUGS (4)
  1. PERTUZUMAB. [Suspect]
     Active Substance: PERTUZUMAB
     Indication: BREAST CANCER
     Dosage: 420 MILLIGRAM, CYCLICAL
     Route: 065
     Dates: start: 20181203
  2. TRASTUZUMAB. [Suspect]
     Active Substance: TRASTUZUMAB
     Indication: BREAST CANCER
     Dosage: 860 MILLIGRAM, CYCLICAL
     Route: 042
     Dates: start: 20181203
  3. ERYTHROCYTES [Concomitant]
     Active Substance: HUMAN RED BLOOD CELL
     Dosage: 550 MILLILITER, AS NECESSARY
     Route: 042
     Dates: start: 20190524, end: 20190524
  4. TRASTUZUMAB. [Suspect]
     Active Substance: TRASTUZUMAB
     Dosage: 642 MILLIGRAM
     Route: 042

REACTIONS (2)
  - Headache [Fatal]
  - Off label use [Unknown]

NARRATIVE: CASE EVENT DATE: 20181203
